FAERS Safety Report 17905279 (Version 1)
Quarter: 2020Q2

REPORT INFORMATION
  Report Type: Spontaneous
  Country: US (occurrence: US)
  Receive Date: 20200616
  Receipt Date: 20200616
  Transmission Date: 20200714
  Serious: No
  Sender: FDA-Public Use
  Company Number: US-VIFOR (INTERNATIONAL) INC.-VIT-2020-06297

PATIENT
  Sex: Male

DRUGS (1)
  1. VELTASSA [Suspect]
     Active Substance: PATIROMER
     Indication: BLOOD PHOSPHORUS
     Dosage: 1 TABLET WITH MEALS 90 PER 30 DAYS
     Route: 048
     Dates: start: 201905, end: 201905

REACTIONS (1)
  - Product taste abnormal [Unknown]
